FAERS Safety Report 15300404 (Version 5)
Quarter: 2018Q4

REPORT INFORMATION
  Report Type: Spontaneous
  Country: US (occurrence: US)
  Receive Date: 20180821
  Receipt Date: 20181004
  Transmission Date: 20190204
  Serious: Yes (Other)
  Sender: FDA-Public Use
  Company Number: US-BAYER-2018-149459

PATIENT
  Age: 28 Year
  Sex: Female
  Weight: 54.88 kg

DRUGS (1)
  1. MIRENA [Suspect]
     Active Substance: LEVONORGESTREL
     Indication: CONTRACEPTION
     Dosage: 20 MCG/24HR, CONT
     Route: 015
     Dates: start: 20180502, end: 20180604

REACTIONS (5)
  - Wrong technique in device usage process [None]
  - Uterine perforation [Recovered/Resolved]
  - Device dislocation [Recovered/Resolved]
  - Device defective [None]
  - Device malfunction [None]

NARRATIVE: CASE EVENT DATE: 20180502
